FAERS Safety Report 24992340 (Version 1)
Quarter: 2025Q1

REPORT INFORMATION
  Report Type: Report from Study
  Country: ZA (occurrence: ZA)
  Receive Date: 20250220
  Receipt Date: 20250220
  Transmission Date: 20250409
  Serious: Yes (Death, Hospitalization)
  Sender: AMGEN
  Company Number: ZA-AMGEN-ZAFSL2025035100

PATIENT
  Age: 58 Year
  Sex: Male

DRUGS (1)
  1. ARANESP [Suspect]
     Active Substance: DARBEPOETIN ALFA
     Indication: Chronic kidney disease
     Dosage: 80 MICROGRAM, QWK
     Route: 065
     Dates: start: 20231011, end: 20250205

REACTIONS (2)
  - Pulmonary embolism [Fatal]
  - Hypotension [Unknown]
